FAERS Safety Report 11668552 (Version 2)
Quarter: 2016Q3

REPORT INFORMATION
  Report Type: Spontaneous
  Country: US (occurrence: US)
  Receive Date: 20151027
  Receipt Date: 20160722
  Transmission Date: 20161109
  Serious: Yes (Death, Hospitalization, Other)
  Sender: FDA-Public Use
  Company Number: US-GLAXOSMITHKLINE-US2015149599

PATIENT
  Age: 64 Year
  Sex: Female

DRUGS (18)
  1. VERAMYST [Suspect]
     Active Substance: FLUTICASONE FUROATE
     Indication: SEASONAL ALLERGY
     Dosage: 2 PUFF(S), QD
     Route: 045
     Dates: start: 2005
  2. MORPHINE SULFATE. [Concomitant]
     Active Substance: MORPHINE SULFATE
  3. ADVAIR DISKUS [Suspect]
     Active Substance: FLUTICASONE PROPIONATE\SALMETEROL XINAFOATE
     Indication: SEASONAL ALLERGY
     Dosage: 1 PUFF(S), BID
     Route: 055
     Dates: start: 2000
  4. LOVASTATIN. [Concomitant]
     Active Substance: LOVASTATIN
  5. ONDANSETRON [Concomitant]
     Active Substance: ONDANSETRON
  6. ASPIRIN. [Concomitant]
     Active Substance: ASPIRIN
  7. MILK THISTLE [Concomitant]
     Active Substance: MILK THISTLE
  8. SENNA [Concomitant]
     Active Substance: SENNA LEAF\SENNOSIDES\SENNOSIDES A AND B
  9. DULOXETINE. [Concomitant]
     Active Substance: DULOXETINE
  10. METHOCARBAMOL. [Concomitant]
     Active Substance: METHOCARBAMOL
  11. MIRALAX [Concomitant]
     Active Substance: POLYETHYLENE GLYCOL 3350
  12. TOPAMAX [Concomitant]
     Active Substance: TOPIRAMATE
  13. WELLBUTRIN [Concomitant]
     Active Substance: BUPROPION HYDROCHLORIDE
  14. ADVAIR DISKUS [Suspect]
     Active Substance: FLUTICASONE PROPIONATE\SALMETEROL XINAFOATE
     Indication: ASTHMA
  15. ADVAIR HFA [Suspect]
     Active Substance: FLUTICASONE PROPIONATE\SALMETEROL XINAFOATE
     Indication: PRODUCT USED FOR UNKNOWN INDICATION
  16. IRON [Concomitant]
     Active Substance: IRON
  17. MORPHINE SULFATE ER [Concomitant]
     Active Substance: MORPHINE SULFATE
  18. ZANAFLEX [Concomitant]
     Active Substance: TIZANIDINE HYDROCHLORIDE

REACTIONS (5)
  - Knee arthroplasty [Recovered/Resolved]
  - Asthma [Recovered/Resolved]
  - Weight decreased [Unknown]
  - Hypotension [Unknown]
  - Death [Fatal]

NARRATIVE: CASE EVENT DATE: 20150528
